FAERS Safety Report 4771507-2 (Version None)
Quarter: 2005Q3

REPORT INFORMATION
  Report Type: 
  Country: None (occurrence: None)
  Receive Date: 20050914
  Receipt Date: 20050914
  Transmission Date: 20060218
  Serious: Yes (Disabling)
  Sender: FDA-Public Use
  Company Number: None

PATIENT
  Age: 32 Year
  Sex: Male
  Weight: 86.1834 kg

DRUGS (1)
  1. TEQUIN [Suspect]
     Indication: SINUSITIS
     Dosage: 400 MG 1 QD

REACTIONS (4)
  - FATIGUE [None]
  - INFLAMMATION [None]
  - MYALGIA [None]
  - NEUROPATHY PERIPHERAL [None]
